FAERS Safety Report 13878998 (Version 1)
Quarter: 2017Q3

REPORT INFORMATION
  Report Type: Spontaneous
  Country: JP (occurrence: JP)
  Receive Date: 20170817
  Receipt Date: 20170817
  Transmission Date: 20171127
  Serious: Yes (Other)
  Sender: FDA-Public Use
  Company Number: JP-MYLANLABS-2017M1050987

PATIENT

DRUGS (6)
  1. BLEOMYCIN [Concomitant]
     Active Substance: BLEOMYCIN SULFATE
     Indication: TESTIS CANCER
     Dosage: 30 MG/BODY ON DAY 2, 9
     Route: 065
  2. MANNITOL. [Concomitant]
     Active Substance: MANNITOL
     Indication: DIURETIC THERAPY
     Dosage: 300 ML/DAY
     Route: 065
  3. ETOPOSIDE. [Concomitant]
     Active Substance: ETOPOSIDE
     Indication: TESTIS CANCER
     Dosage: 100 MG/M2 FROM DAY 1-5
     Route: 065
  4. DEXAMETHASONE. [Concomitant]
     Active Substance: DEXAMETHASONE
     Indication: PRODUCT USED FOR UNKNOWN INDICATION
     Dosage: 3.3 MG
     Route: 065
  5. CISPLATIN. [Suspect]
     Active Substance: CISPLATIN
     Indication: TESTIS CANCER
     Dosage: 20 MG/M2 FROM DAY 1-5
     Route: 065
  6. FUROSEMIDE. [Concomitant]
     Active Substance: FUROSEMIDE
     Indication: DIURETIC THERAPY
     Dosage: 20 MG/DAY
     Route: 065

REACTIONS (2)
  - Cerebral venous thrombosis [Recovered/Resolved]
  - Superior sagittal sinus thrombosis [Recovered/Resolved]
